FAERS Safety Report 11975700 (Version 2)
Quarter: 2016Q1

REPORT INFORMATION
  Report Type: Spontaneous
  Country: CZ (occurrence: CZ)
  Receive Date: 20160129
  Receipt Date: 20160210
  Transmission Date: 20160526
  Serious: Yes (Hospitalization, Other)
  Sender: FDA-Public Use
  Company Number: CZ-009507513-1601CZE010152

PATIENT
  Age: 11 Year
  Sex: Female

DRUGS (3)
  1. GRAZAX [Suspect]
     Active Substance: PHLEUM PRATENSE POLLEN
     Indication: SEASONAL ALLERGY
     Dosage: GRAZAX 225 75000 SQ-T, ORAL LYOPHILISATE
     Route: 048
     Dates: start: 20160106, end: 20160106
  2. LIVOSTIN [Concomitant]
     Active Substance: LEVOCABASTINE HYDROCHLORIDE
  3. AERIUS [Concomitant]
     Active Substance: DESLORATADINE

REACTIONS (7)
  - Lip swelling [Recovered/Resolved]
  - Pain [Unknown]
  - Erythema [Recovered/Resolved]
  - Dizziness [Unknown]
  - Photophobia [Unknown]
  - Sensation of foreign body [Recovered/Resolved]
  - Oropharyngeal pain [Unknown]

NARRATIVE: CASE EVENT DATE: 20160106
